FAERS Safety Report 18372837 (Version 1)
Quarter: 2020Q4

REPORT INFORMATION
  Report Type: Report from Study
  Country: US (occurrence: US)
  Receive Date: 20201012
  Receipt Date: 20201012
  Transmission Date: 20210114
  Serious: Yes (Other)
  Sender: FDA-Public Use
  Company Number: NVSC2020US272709

PATIENT
  Age: 36 Year
  Sex: Male

DRUGS (1)
  1. COSENTYX [Suspect]
     Active Substance: SECUKINUMAB
     Indication: PSORIASIS
     Dosage: 300 MG, QMO (INJECT 2 PENS OF 150 MG)
     Route: 058

REACTIONS (8)
  - Pyrexia [Unknown]
  - COVID-19 [Recovered/Resolved]
  - Anosmia [Unknown]
  - Abdominal discomfort [Unknown]
  - Cough [Unknown]
  - Ageusia [Unknown]
  - Headache [Unknown]
  - Feeling abnormal [Unknown]

NARRATIVE: CASE EVENT DATE: 20200824
